FAERS Safety Report 6087806-0 (Version None)
Quarter: 2009Q1

REPORT INFORMATION
  Report Type: 
  Country: None (occurrence: None)
  Receive Date: 20090223
  Receipt Date: 20090211
  Transmission Date: 20090719
  Serious: Yes (Hospitalization)
  Sender: FDA-Public Use
  Company Number: US-ELI_LILLY_AND_COMPANY-US200902002677

PATIENT
  Age: 52 Year
  Sex: Female

DRUGS (4)
  1. OLANZAPINE [Suspect]
     Indication: BIPOLAR I DISORDER
     Dosage: 40 MG, UNK
  2. CYMBALTA [Suspect]
     Indication: BIPOLAR I DISORDER
     Dosage: 60 MG, DAILY (1/D)
  3. DEPAKOTE [Concomitant]
     Dosage: 100 MG, 2/D
  4. ATIVAN [Concomitant]
     Dosage: 1 MG, 2/D

REACTIONS (3)
  - ASPIRATION [None]
  - OESOPHAGEAL OEDEMA [None]
  - OVERDOSE [None]
